FAERS Safety Report 10379862 (Version 1)
Quarter: 2014Q1

REPORT INFORMATION
  Report Type: Spontaneous
  Country: US (occurrence: None)
  Receive Date: 20140306
  Receipt Date: 20140306
  Transmission Date: 20141002
  Serious: Yes (Hospitalization)
  Sender: FDA-Public Use
  Company Number: 163-21880-13033622

PATIENT
  Age: 59 Year
  Sex: Female
  Weight: 81.65 kg

DRUGS (21)
  1. REVLIMID (LENALIDOMIDE) (5 MILLIGRAM, CAPSULES) [Suspect]
     Indication: PLASMA CELL MYELOMA
     Route: 048
     Dates: start: 20121116, end: 20130121
  2. OMEPRAZOLE [Concomitant]
  3. LANTUS SOLOSTART (INSULIN GLARGINE) [Concomitant]
  4. CLONIDINE [Concomitant]
  5. NOVOLOG MIX 70/30 [Concomitant]
  6. DOCUSATE SODIUM [Concomitant]
  7. LIDOCAINE-PRILOCAINE (EMLA) [Concomitant]
  8. ASPIRIN (ACETYLSALICYLIC ACID) [Concomitant]
  9. DEXAMETHASONE [Concomitant]
  10. BUMETANIDE [Concomitant]
  11. NIFEDIPINE ER (NIFEDIPINE) [Concomitant]
  12. COREG (CARVEDILOL) [Concomitant]
  13. ENDOCET (OXYCOCET) (TABLET) (PARACETAMOL, OXYCODONE HYDROCHLORIDE) [Concomitant]
  14. LYRICA (PREGABALIN) [Concomitant]
  15. TRICOR (FENOFIBRATE) [Concomitant]
  16. TRAMADOL [Concomitant]
  17. CRESTOR (ROSUVASTATIN) [Concomitant]
  18. NASONEX (MOMETASONE FUROATE) [Concomitant]
  19. LISINOPRIL [Concomitant]
  20. PROMETHAZINE [Concomitant]
  21. NIASPAN ER (NICOTINIC ACID) [Concomitant]

REACTIONS (2)
  - Dyspnoea [None]
  - Platelet count decreased [None]
